APPROVED DRUG PRODUCT: DOXYCYCLINE HYCLATE
Active Ingredient: DOXYCYCLINE HYCLATE
Strength: EQ 100MG BASE
Dosage Form/Route: TABLET;ORAL
Application: A062764 | Product #001
Applicant: INTERPHARM INC
Approved: Sep 2, 1988 | RLD: No | RS: No | Type: DISCN